FAERS Safety Report 18822762 (Version 1)
Quarter: 2021Q1

REPORT INFORMATION
  Report Type: Spontaneous
  Country: IT (occurrence: US)
  Receive Date: 20210202
  Receipt Date: 20210202
  Transmission Date: 20210419
  Serious: No
  Sender: FDA-Public Use
  Company Number: IT-LEADIANT BIOSCIENCES INC-2020STPI000359

PATIENT
  Age: 43 Year
  Sex: Female

DRUGS (2)
  1. KABIVEN PI [Concomitant]
     Dosage: 1440 MILLILITER, QD
     Route: 042
     Dates: start: 20200704, end: 20200706
  2. CARNITOR [Suspect]
     Active Substance: LEVOCARNITINE
     Indication: CARDIAC FAILURE
     Dosage: 2 GRAM PER DAY
     Route: 042
     Dates: start: 20200701, end: 20200708

REACTIONS (1)
  - Rash [Not Recovered/Not Resolved]

NARRATIVE: CASE EVENT DATE: 20200703
